FAERS Safety Report 5768703-4 (Version None)
Quarter: 2008Q2

REPORT INFORMATION
  Report Type: 
  Country: None (occurrence: None)
  Receive Date: 20080612
  Receipt Date: 20080516
  Transmission Date: 20081010
  Serious: No
  Sender: FDA-Public Use
  Company Number: US-BOEHRINGER INGELHEIM GMBH, GERMANY-2007-BP-21475BP

PATIENT
  Sex: Female

DRUGS (14)
  1. SPIRIVA [Suspect]
     Indication: CHRONIC OBSTRUCTIVE PULMONARY DISEASE
     Route: 055
     Dates: start: 20040101
  2. SPIRIVA [Suspect]
     Indication: ASTHMA
  3. SPIRIVA [Suspect]
     Indication: BRONCHITIS CHRONIC
  4. NORVASC [Concomitant]
     Indication: HYPERTENSION
  5. ASPIRIN [Concomitant]
  6. VITAMINS [Concomitant]
  7. CENTRUM SILVER [Concomitant]
  8. FOLIC ACID [Concomitant]
  9. VITAMIN B COMPLEX CAP [Concomitant]
  10. VITAMIN E [Concomitant]
  11. ASCORBIC ACID [Concomitant]
  12. VITAMIN D [Concomitant]
  13. FUROSEMIDE [Concomitant]
  14. POTASSIUM CHLORIDE [Concomitant]

REACTIONS (5)
  - BODY HEIGHT DECREASED [None]
  - CONSTIPATION [None]
  - FEELING ABNORMAL [None]
  - INTESTINAL PROLAPSE [None]
  - VISION BLURRED [None]
